FAERS Safety Report 5310143-6 (Version None)
Quarter: 2007Q2

REPORT INFORMATION
  Report Type: 
  Country: None (occurrence: None)
  Receive Date: 20070427
  Receipt Date: 20070424
  Transmission Date: 20071010
  Serious: Yes (Other)
  Sender: FDA-Public Use
  Company Number: HQWYE803724APR07

PATIENT
  Age: 63 Year
  Sex: Male

DRUGS (5)
  1. CORDARONE [Suspect]
     Indication: ATRIAL FIBRILLATION
     Dosage: 2 X 300 + 900 ML
     Route: 042
     Dates: end: 20050701
  2. BECLOMETHASONE DIPROPIONATE [Concomitant]
     Route: 055
  3. CLOPIDOGREL [Concomitant]
     Route: 048
  4. ACETYLSALICYLIC ACID SRT [Concomitant]
     Route: 065
  5. DILTIAZEM HCL [Concomitant]
     Route: 048

REACTIONS (2)
  - CORNEAL DEPOSITS [None]
  - VISION BLURRED [None]
